FAERS Safety Report 8108979-1 (Version None)
Quarter: 2012Q1

REPORT INFORMATION
  Report Type: 
  Country: None (occurrence: None)
  Receive Date: 20120202
  Receipt Date: 20120105
  Transmission Date: 20120608
  Serious: No
  Sender: FDA-Public Use
  Company Number: US-AMGEN-USASP2012000748

PATIENT
  Age: 66 Year
  Sex: Female

DRUGS (2)
  1. ENBREL [Suspect]
     Indication: RHEUMATOID ARTHRITIS
     Dosage: 50 MG, QWK
     Dates: start: 20120102
  2. METHOTREXATE [Concomitant]
     Dosage: 1 MG, UNK
     Dates: start: 20111101

REACTIONS (2)
  - DIARRHOEA [None]
  - ABDOMINAL PAIN UPPER [None]
